FAERS Safety Report 14292430 (Version 1)
Quarter: 2017Q4

REPORT INFORMATION
  Report Type: Spontaneous
  Country: CN (occurrence: CN)
  Receive Date: 20171215
  Receipt Date: 20171215
  Transmission Date: 20180321
  Serious: Yes (Life-Threatening, Hospitalization)
  Sender: FDA-Public Use
  Company Number: CN-BAYER-2017-241730

PATIENT
  Age: 11 Year
  Sex: Male
  Weight: 40.2 kg

DRUGS (2)
  1. MAGNEVIST [Suspect]
     Active Substance: GADOPENTETATE DIMEGLUMINE
     Indication: IMAGING PROCEDURE
  2. MAGNEVIST [Suspect]
     Active Substance: GADOPENTETATE DIMEGLUMINE
     Indication: MEDULLOBLASTOMA
     Dosage: 10 ML, ONCE
     Route: 042
     Dates: start: 20171213, end: 20171213

REACTIONS (7)
  - Contrast media allergy [None]
  - Respiratory rate decreased [None]
  - Tracheal obstruction [None]
  - Dyspnoea [None]
  - Rash maculo-papular [None]
  - Blood pressure decreased [None]
  - Nasal pruritus [None]

NARRATIVE: CASE EVENT DATE: 20171213
